FAERS Safety Report 8401634-X (Version None)
Quarter: 2012Q2

REPORT INFORMATION
  Report Type: 
  Country: None (occurrence: None)
  Receive Date: 20120601
  Receipt Date: 20110812
  Transmission Date: 20120825
  Serious: No
  Sender: FDA-Public Use
  Company Number: US-BRISTOL-MYERS SQUIBB COMPANY-15968415

PATIENT
  Age: 70 Year
  Sex: Male
  Weight: 89 kg

DRUGS (3)
  1. GLIPIZIDE [Concomitant]
     Indication: DIABETES MELLITUS
  2. BARACLUDE [Suspect]
     Indication: HEPATITIS B
     Dosage: 3CC
     Route: 048
     Dates: start: 20110707
  3. NPH INSULIN [Concomitant]
     Indication: DIABETES MELLITUS
     Dosage: DOSE INCREASED

REACTIONS (1)
  - BLOOD GLUCOSE INCREASED [None]
